FAERS Safety Report 9412025 (Version 1)
Quarter: 2013Q3

REPORT INFORMATION
  Report Type: Spontaneous
  Country: IT (occurrence: IT)
  Receive Date: 20130722
  Receipt Date: 20130722
  Transmission Date: 20140515
  Serious: Yes (Hospitalization)
  Sender: FDA-Public Use
  Company Number: IT-JNJFOC-20130712202

PATIENT
  Age: 34 Year
  Sex: Male

DRUGS (3)
  1. PATROL [Suspect]
     Indication: ARTHROSCOPY
     Route: 048
     Dates: start: 20120228, end: 20120319
  2. ACETYLSALICYLIC ACID [Suspect]
     Indication: ARTHROSCOPY
     Dosage: 500 MG TABLET
     Route: 048
     Dates: start: 20120228, end: 20120319
  3. SODIUM HYALURONATE [Concomitant]
     Indication: MEDICAL DIET
     Route: 065

REACTIONS (3)
  - Mallory-Weiss syndrome [Recovering/Resolving]
  - Gastrointestinal haemorrhage [Recovering/Resolving]
  - Anaemia [Recovering/Resolving]
